FAERS Safety Report 8322594-6 (Version None)
Quarter: 2012Q2

REPORT INFORMATION
  Report Type: 
  Country: None (occurrence: None)
  Receive Date: 20120426
  Receipt Date: 20120412
  Transmission Date: 20120825
  Serious: Yes (Other)
  Sender: FDA-Public Use
  Company Number: 12000376

PATIENT
  Age: 32 Year
  Sex: Male

DRUGS (1)
  1. KLOR-CON [Suspect]
     Indication: BLOOD POTASSIUM DECREASED
     Dosage: 25 MEQ, QD, ORAL
     Route: 048
     Dates: start: 20080101

REACTIONS (1)
  - CONVULSION [None]
